FAERS Safety Report 6516205-X (Version None)
Quarter: 2009Q4

REPORT INFORMATION
  Report Type: 
  Country: None (occurrence: None)
  Receive Date: 20091223
  Receipt Date: 20091221
  Transmission Date: 20100525
  Serious: Yes (Hospitalization)
  Sender: FDA-Public Use
  Company Number: US-GILEAD-2009-0025555

PATIENT
  Sex: Male
  Weight: 75.818 kg

DRUGS (9)
  1. LETAIRIS [Suspect]
     Indication: PULMONARY ARTERIAL HYPERTENSION
     Route: 048
     Dates: start: 20090729
  2. VENTAVIS [Concomitant]
  3. LISINOPRIL [Concomitant]
  4. LIPITOR [Concomitant]
  5. ASPIRIN [Concomitant]
  6. NITROGLYCERIN [Concomitant]
  7. ALLOPURINOL [Concomitant]
  8. NEXIUM [Concomitant]
  9. TUMS [Concomitant]

REACTIONS (2)
  - CORONARY ARTERY DISEASE [None]
  - INTESTINAL ISCHAEMIA [None]
